FAERS Safety Report 7581743-8 (Version None)
Quarter: 2011Q2

REPORT INFORMATION
  Report Type: 
  Country: None (occurrence: None)
  Receive Date: 20110629
  Receipt Date: 20110614
  Transmission Date: 20111010
  Serious: Yes (Life-Threatening, Hospitalization, Other)
  Sender: FDA-Public Use
  Company Number: DE-BAYER-2011-052016

PATIENT
  Age: 27 Year
  Sex: Female
  Weight: 80 kg

DRUGS (7)
  1. TELMISARTAN [Suspect]
     Route: 048
  2. BISOPROLOL FUMARATE [Suspect]
     Route: 048
  3. LOSARTAN POTASSIUM [Suspect]
     Route: 048
  4. ACETYLSALICYLIC ACID SRT [Suspect]
     Route: 048
  5. TELMISARTAN AND HYDROCHLOROTHIAZIDE [Suspect]
     Route: 048
  6. SOTALOL HCL [Suspect]
     Dosage: 1 X 30 TABLETS
     Route: 048
  7. KATZEN INSULIN [Suspect]
     Route: 058

REACTIONS (9)
  - HYPOTENSION [None]
  - RENAL FAILURE [None]
  - TORSADE DE POINTES [None]
  - SYNCOPE [None]
  - SUICIDE ATTEMPT [None]
  - ARRHYTHMIA [None]
  - HYPOGLYCAEMIA [None]
  - ELECTROCARDIOGRAM QT PROLONGED [None]
  - GASTRIC ATONY [None]
